FAERS Safety Report 14320416 (Version 1)
Quarter: 2017Q4

REPORT INFORMATION
  Report Type: Spontaneous
  Country: DE (occurrence: DE)
  Receive Date: 20171222
  Receipt Date: 20171222
  Transmission Date: 20180321
  Serious: Yes (Death, Hospitalization, Other)
  Sender: FDA-Public Use
  Company Number: DE-BAUSCH-BL-2017-034351

PATIENT
  Age: 53 Year
  Sex: Male

DRUGS (13)
  1. RISPERDAL CONSTA [Suspect]
     Active Substance: RISPERIDONE
     Route: 030
  2. LORAZEPAM. [Suspect]
     Active Substance: LORAZEPAM
     Route: 042
  3. RISPERIDONE. [Suspect]
     Active Substance: RISPERIDONE
     Indication: SCHIZOPHRENIA
     Route: 048
  4. RISPERDAL CONSTA [Suspect]
     Active Substance: RISPERIDONE
     Route: 030
  5. CLEXANE [Suspect]
     Active Substance: ENOXAPARIN SODIUM
     Indication: PRODUCT USED FOR UNKNOWN INDICATION
     Route: 058
  6. QUETIAPINE. [Suspect]
     Active Substance: QUETIAPINE
     Route: 065
  7. QUETIAPINE. [Suspect]
     Active Substance: QUETIAPINE
     Indication: PRODUCT USED FOR UNKNOWN INDICATION
     Route: 065
     Dates: start: 2016, end: 2016
  8. RISPERIDONE. [Suspect]
     Active Substance: RISPERIDONE
     Dosage: DOSE WAS SUCCESSIVELY INCREASED
     Route: 048
  9. BENPERIDOL [Suspect]
     Active Substance: BENPERIDOL
     Indication: PRODUCT USED FOR UNKNOWN INDICATION
     Route: 065
  10. LORAZEPAM. [Suspect]
     Active Substance: LORAZEPAM
     Indication: PRODUCT USED FOR UNKNOWN INDICATION
     Route: 048
     Dates: start: 20160525
  11. LORAZEPAM. [Suspect]
     Active Substance: LORAZEPAM
     Route: 042
  12. RISPERDAL CONSTA [Suspect]
     Active Substance: RISPERIDONE
     Indication: SCHIZOPHRENIA
     Route: 030
  13. DIAZEPAM. [Concomitant]
     Active Substance: DIAZEPAM
     Indication: PRODUCT USED FOR UNKNOWN INDICATION

REACTIONS (16)
  - Neuroleptic malignant syndrome [Recovered/Resolved]
  - Pneumonia [Unknown]
  - Poisoning [Fatal]
  - Psychotic symptom [Not Recovered/Not Resolved]
  - Haemorrhage [Unknown]
  - Inappropriate schedule of drug administration [Unknown]
  - Urinary tract infection [Unknown]
  - Diet refusal [Unknown]
  - Myocardial infarction [Fatal]
  - Urinary retention [Unknown]
  - Refusal of treatment by patient [Unknown]
  - Off label use [Unknown]
  - Irritability [Not Recovered/Not Resolved]
  - General physical health deterioration [Recovered/Resolved]
  - Aggression [Not Recovered/Not Resolved]
  - Epilepsy [Unknown]

NARRATIVE: CASE EVENT DATE: 2016
